FAERS Safety Report 5130249-4 (Version None)
Quarter: 2006Q4

REPORT INFORMATION
  Report Type: 
  Country: None (occurrence: None)
  Receive Date: 20061013
  Receipt Date: 20060928
  Transmission Date: 20070319
  Serious: Yes (Hospitalization)
  Sender: FDA-Public Use
  Company Number: REM_00261_2006

PATIENT
  Age: 38 Year
  Sex: Female

DRUGS (9)
  1. REMODULIN [Suspect]
     Indication: PULMONARY HYPERTENSION
     Dosage: 48 NG/KG/MIN CONTINUOUS IV
     Route: 042
     Dates: start: 20060620
  2. DIGOXIN [Concomitant]
  3. DEMADEX [Concomitant]
  4. COUMADIN [Concomitant]
  5. SILDENAFIL [Concomitant]
  6. OXYGEN [Concomitant]
  7. SYNTHROID [Concomitant]
  8. TYLENOL /00020001/ [Concomitant]
  9. INEXIUM /01479302/ [Concomitant]

REACTIONS (3)
  - BLOOD CULTURE POSITIVE [None]
  - CENTRAL LINE INFECTION [None]
  - MORAXELLA INFECTION [None]
